FAERS Safety Report 8494360-2 (Version None)
Quarter: 2012Q2

REPORT INFORMATION
  Report Type: 
  Country: None (occurrence: None)
  Receive Date: 20120628
  Receipt Date: 20120619
  Transmission Date: 20120825
  Serious: Yes (Other)
  Sender: FDA-Public Use
  Company Number: 2012SP034431

PATIENT
  Age: 65 Year
  Sex: Female
  Weight: 45 kg

DRUGS (2)
  1. POSACONAZOLE [Suspect]
     Indication: FUNGAL INFECTION
     Dosage: 300 MG;IV
     Route: 042
     Dates: start: 20120604
  2. POSACONAZOLE [Suspect]
     Indication: PROPHYLAXIS
     Dosage: 300 MG;IV
     Route: 042
     Dates: start: 20120604

REACTIONS (1)
  - PULMONARY OEDEMA [None]
